FAERS Safety Report 19216621 (Version 1)
Quarter: 2021Q2

REPORT INFORMATION
  Report Type: Spontaneous
  Country: US (occurrence: US)
  Receive Date: 20210505
  Receipt Date: 20210505
  Transmission Date: 20210717
  Serious: No
  Sender: FDA-Public Use
  Company Number: US-SA-2021SA146895

PATIENT
  Age: 66 Year
  Sex: Female

DRUGS (2)
  1. DUPIXENT [Suspect]
     Active Substance: DUPILUMAB
     Indication: DERMATITIS ATOPIC
     Dosage: 300 MG, QOW
     Route: 058
  2. MODERNA COVID?19 VACCINE [Suspect]
     Active Substance: CX-024414
     Indication: IMMUNISATION
     Dosage: UNK
     Dates: start: 20210411

REACTIONS (14)
  - Illness [Recovered/Resolved]
  - Blister [Unknown]
  - Pruritus [Unknown]
  - Eczema [Unknown]
  - Skin fissures [Unknown]
  - Eye swelling [Unknown]
  - Rash [Unknown]
  - COVID-19 [Unknown]
  - Pyrexia [Unknown]
  - Fatigue [Unknown]
  - Product dose omission issue [Unknown]
  - Decreased appetite [Unknown]
  - Peripheral swelling [Unknown]
  - Insomnia [Unknown]

NARRATIVE: CASE EVENT DATE: 2020
